FAERS Safety Report 13638780 (Version 1)
Quarter: 2017Q2

REPORT INFORMATION
  Report Type: Spontaneous
  Country: FR (occurrence: FR)
  Receive Date: 20170609
  Receipt Date: 20170609
  Transmission Date: 20170830
  Serious: Yes (Death, Other)
  Sender: FDA-Public Use
  Company Number: FR-JNJFOC-20170605048

PATIENT
  Age: 79 Year
  Sex: Male

DRUGS (1)
  1. DOXORUBICIN HYDROCHLORIDE. [Suspect]
     Active Substance: DOXORUBICIN HYDROCHLORIDE
     Indication: HEPATOCELLULAR CARCINOMA
     Dosage: 50 MG IN 10 ML IODIZED OIL
     Route: 013

REACTIONS (4)
  - Incorrect route of drug administration [Unknown]
  - Product use in unapproved indication [Unknown]
  - Lung infection [Fatal]
  - Off label use [Unknown]
